FAERS Safety Report 8483439-7 (Version None)
Quarter: 2012Q3

REPORT INFORMATION
  Report Type: 
  Country: None (occurrence: None)
  Receive Date: 20120702
  Receipt Date: 20120629
  Transmission Date: 20120928
  Serious: Yes (Death)
  Sender: FDA-Public Use
  Company Number: PHHY2012IR056065

PATIENT
  Age: 5 Year

DRUGS (7)
  1. METHOTREXATE [Concomitant]
     Dosage: 6 MG/M2, UNK
  2. CYCLOPHOSPHAMIDE [Concomitant]
  3. CYCLOSPORINE [Suspect]
     Indication: PROPHYLAXIS AGAINST GRAFT VERSUS HOST DISEASE
     Dosage: 1.5 MG/KG, DAILY
     Route: 042
  4. CYCLOSPORINE [Suspect]
     Dosage: 3 MG/KG, DAILY
     Route: 042
  5. ANTI-THYMOCYTE GLOBULIN NOS [Concomitant]
     Dosage: 30 MG/KG, UNK
  6. METHOTREXATE [Concomitant]
     Indication: PROPHYLAXIS AGAINST GRAFT VERSUS HOST DISEASE
     Dosage: 10 MG/M2, UNK
  7. BUSULFAN [Concomitant]

REACTIONS (2)
  - BACTERIAL SEPSIS [None]
  - ACUTE GRAFT VERSUS HOST DISEASE IN INTESTINE [None]
